FAERS Safety Report 13136767 (Version 1)
Quarter: 2017Q1

REPORT INFORMATION
  Report Type: Spontaneous
  Country: CA (occurrence: CA)
  Receive Date: 20170123
  Receipt Date: 20170123
  Transmission Date: 20170428
  Serious: Yes (Death)
  Sender: FDA-Public Use
  Company Number: CA-TEVA-732560ACC

PATIENT
  Sex: Female

DRUGS (11)
  1. CLOZAPINE. [Suspect]
     Active Substance: CLOZAPINE
  2. OXAZEPAM. [Suspect]
     Active Substance: OXAZEPAM
  3. CITALOPRAM [Suspect]
     Active Substance: CITALOPRAM HYDROBROMIDE
  4. METOPROLOL. [Suspect]
     Active Substance: METOPROLOL
  5. PRAVASTATIN SODIUM. [Suspect]
     Active Substance: PRAVASTATIN SODIUM
  6. CLONIDINE. [Suspect]
     Active Substance: CLONIDINE
  7. CLOPIDOGREL [Suspect]
     Active Substance: CLOPIDOGREL BISULFATE
  8. METFORMIN [Suspect]
     Active Substance: METFORMIN HYDROCHLORIDE
  9. OLANZAPINE. [Suspect]
     Active Substance: OLANZAPINE
  10. ZYPREXA ZYDIS [Suspect]
     Active Substance: OLANZAPINE
  11. RAMIPRIL. [Suspect]
     Active Substance: RAMIPRIL

REACTIONS (1)
  - Death [Fatal]
